FAERS Safety Report 16601940 (Version 2)
Quarter: 2019Q3

REPORT INFORMATION
  Report Type: Report from Study
  Country: CA (occurrence: CA)
  Receive Date: 20190719
  Receipt Date: 20190726
  Transmission Date: 20191004
  Serious: Yes (Hospitalization, Other)
  Sender: FDA-Public Use
  Company Number: CA-GILEAD-2019-0419172

PATIENT
  Age: 47 Year
  Sex: Male

DRUGS (1)
  1. AZTREONAM LYSINE [Suspect]
     Active Substance: AZTREONAM LYSINE
     Indication: CYSTIC FIBROSIS
     Dosage: UNK
     Dates: start: 201905, end: 201905

REACTIONS (2)
  - Intentional dose omission [Unknown]
  - Lung transplant [Unknown]

NARRATIVE: CASE EVENT DATE: 20190511
